FAERS Safety Report 8537329-1 (Version None)
Quarter: 2012Q3

REPORT INFORMATION
  Report Type: 
  Country: None (occurrence: None)
  Receive Date: 20120725
  Receipt Date: 20120724
  Transmission Date: 20120928
  Serious: Yes (Hospitalization, Other)
  Sender: FDA-Public Use
  Company Number: US-PFIZER INC-2011143894

PATIENT
  Sex: Female
  Weight: 70.748 kg

DRUGS (14)
  1. PROVENTIL GENTLEHALER [Concomitant]
     Indication: ASTHMA
     Dosage: UNK
  2. DETROL LA [Suspect]
     Indication: INCONTINENCE
     Dosage: 4 MG, DAILY
     Route: 048
  3. ADVAIR DISKUS 100/50 [Concomitant]
     Indication: ASTHMA
     Dosage: UNK
  4. CLONAZEPAM [Concomitant]
     Indication: BIPOLAR DISORDER
     Dosage: 0.5 MG, UNK
  5. ASPIRIN [Concomitant]
     Dosage: 325 MG, UNK
  6. DETROL LA [Suspect]
     Indication: URINARY INCONTINENCE
     Dosage: 4 MG, DAILY
     Route: 048
  7. NEXIUM [Concomitant]
     Indication: GASTROOESOPHAGEAL REFLUX DISEASE
     Dosage: 40 MG, UNK
  8. RISPERIDONE [Concomitant]
     Indication: BIPOLAR DISORDER
     Dosage: 0.5 MG, 1X/DAY
  9. POTASSIUM CHLORIDE [Concomitant]
     Dosage: UNK
  10. SEROQUEL [Concomitant]
     Indication: BIPOLAR DISORDER
     Dosage: 100 MG, UNK
  11. CARVEDILOL [Concomitant]
     Indication: HYPERTENSION
     Dosage: 25 MG, 2X/DAY
  12. TRIAMTERENE [Concomitant]
     Dosage: 37.5 MG, 1X/DAY
  13. SIMVASTATIN [Concomitant]
     Dosage: UNK
  14. ALENDRONATE SODIUM [Concomitant]

REACTIONS (3)
  - CARDIAC DISORDER [None]
  - PNEUMONIA ASPIRATION [None]
  - APPARENT DEATH [None]
